FAERS Safety Report 14347840 (Version 1)
Quarter: 2018Q1

REPORT INFORMATION
  Report Type: Spontaneous
  Country: GB (occurrence: GB)
  Receive Date: 20180103
  Receipt Date: 20180103
  Transmission Date: 20180509
  Serious: Yes (Hospitalization, Other)
  Sender: FDA-Public Use
  Company Number: GB-MYLANLABS-2017M1083769

PATIENT
  Age: 78 Year
  Sex: Female

DRUGS (1)
  1. BACLOFEN. [Suspect]
     Active Substance: BACLOFEN
     Indication: PRODUCT USED FOR UNKNOWN INDICATION
     Dates: start: 20170729, end: 20170730

REACTIONS (6)
  - Fall [Recovered/Resolved]
  - Confusional state [Recovering/Resolving]
  - Unresponsive to stimuli [Recovering/Resolving]
  - Agitation [Recovering/Resolving]
  - Somnolence [Recovering/Resolving]
  - Drug prescribing error [Unknown]

NARRATIVE: CASE EVENT DATE: 20170729
